FAERS Safety Report 8446411-9 (Version None)
Quarter: 2012Q2

REPORT INFORMATION
  Report Type: 
  Country: None (occurrence: None)
  Receive Date: 20120618
  Receipt Date: 20120305
  Transmission Date: 20120825
  Serious: No
  Sender: FDA-Public Use
  Company Number: US-TEVA-326386USA

PATIENT
  Age: 57 Year
  Sex: Female

DRUGS (3)
  1. ACTIQ [Suspect]
     Dosage: 1600 UG PRN LESS THAN 1/DAY
     Route: 002
     Dates: end: 20120101
  2. ACTIQ [Suspect]
     Indication: FIBROMYALGIA
     Dosage: 200 UG PRN 1-2/DAY
     Route: 002
     Dates: end: 20100101
  3. OXYCODONE HCL [Concomitant]
     Indication: FIBROMYALGIA
     Dosage: EVERY 12 HOURS

REACTIONS (2)
  - OFF LABEL USE [None]
  - DENTAL CARIES [None]
